FAERS Safety Report 7279349-3 (Version None)
Quarter: 2011Q1

REPORT INFORMATION
  Report Type: 
  Country: None (occurrence: None)
  Receive Date: 20110207
  Receipt Date: 20110203
  Transmission Date: 20110831
  Serious: Yes (Other)
  Sender: FDA-Public Use
  Company Number: GB-BRISTOL-MYERS SQUIBB COMPANY-15229289

PATIENT
  Age: 71 Year

DRUGS (3)
  1. CETUXIMAB [Suspect]
     Indication: OESOPHAGEAL CARCINOMA
     Dosage: RECENT INF:21DEC2009
     Route: 042
     Dates: start: 20091016, end: 20100110
  2. CAPECITABINE [Suspect]
     Indication: OESOPHAGEAL CARCINOMA
     Dosage: RECENT INF:23DEC2009
     Route: 048
     Dates: start: 20091016
  3. CISPLATIN [Suspect]
     Indication: OESOPHAGEAL CARCINOMA
     Dosage: RECENT INF:21DEC2009
     Route: 042
     Dates: start: 20091016, end: 20091221

REACTIONS (1)
  - OESOPHAGITIS [None]
